FAERS Safety Report 13298294 (Version 1)
Quarter: 2017Q1

REPORT INFORMATION
  Report Type: Spontaneous
  Country: US (occurrence: US)
  Receive Date: 20170306
  Receipt Date: 20170306
  Transmission Date: 20170428
  Serious: No
  Sender: FDA-Public Use
  Company Number: None

PATIENT
  Age: 62 Year
  Sex: Male

DRUGS (1)
  1. CAPECITABINE TAB 500MG [Suspect]
     Active Substance: CAPECITABINE
     Indication: COLON CANCER
     Dosage: 1500MG BID ORAL X14D ON, 7D OFF
     Route: 048
     Dates: start: 20160826

REACTIONS (2)
  - Skin exfoliation [None]
  - Skin discolouration [None]

NARRATIVE: CASE EVENT DATE: 20170306
